FAERS Safety Report 7853887-4 (Version None)
Quarter: 2011Q4

REPORT INFORMATION
  Report Type: 
  Country: None (occurrence: None)
  Receive Date: 20111026
  Receipt Date: 20111011
  Transmission Date: 20120403
  Serious: Yes (Other)
  Sender: FDA-Public Use
  Company Number: US-BAYER-2010-008437

PATIENT
  Age: 18 Year
  Sex: Female
  Weight: 49.887 kg

DRUGS (13)
  1. SINGULAIR [Concomitant]
     Indication: ASTHMA
     Dosage: UNK
     Dates: start: 20050815
  2. ALBUTEROL [Concomitant]
     Indication: ASTHMA
     Dosage: UNK
     Dates: start: 20040101
  3. LAMICTAL [Concomitant]
     Indication: HEADACHE
  4. METHAZOLAMIDE [Concomitant]
     Indication: HEADACHE
  5. YASMIN [Suspect]
     Indication: CONTRACEPTION
     Dosage: UNK
     Dates: start: 20070501, end: 20080601
  6. IBUPROFEN [Concomitant]
     Dosage: UNK UNK, PRN
  7. NEXIUM [Concomitant]
     Indication: GASTROOESOPHAGEAL REFLUX DISEASE
     Dosage: UNK
     Dates: start: 20060101
  8. NEXIUM [Concomitant]
  9. NASACORT [Concomitant]
  10. METHAZOLAMIDE [Concomitant]
     Indication: BENIGN INTRACRANIAL HYPERTENSION
  11. DROSPIRENONE AND ETHINYL ESTRADIOL [Suspect]
     Indication: CONTRACEPTION
     Dosage: UNK
     Dates: start: 20080601, end: 20091218
  12. MULTI-VITAMINS [Concomitant]
     Indication: VITAMIN SUPPLEMENTATION
     Dosage: UNK
     Dates: start: 20080101
  13. LAMICTAL [Concomitant]
     Indication: BENIGN INTRACRANIAL HYPERTENSION

REACTIONS (6)
  - CHOLECYSTITIS CHRONIC [None]
  - GALLBLADDER DISORDER [None]
  - GALLBLADDER PAIN [None]
  - ABDOMINAL PAIN [None]
  - POST CHOLECYSTECTOMY SYNDROME [None]
  - ANXIETY [None]
